FAERS Safety Report 7355204-5 (Version None)
Quarter: 2011Q1

REPORT INFORMATION
  Report Type: 
  Country: None (occurrence: None)
  Receive Date: 20110316
  Receipt Date: 20110311
  Transmission Date: 20110831
  Serious: No
  Sender: FDA-Public Use
  Company Number: US-PFIZER INC-2011054531

PATIENT
  Sex: Female

DRUGS (3)
  1. QUINIDINE [Suspect]
  2. BENICAR [Suspect]
  3. VERAPAMIL HCL [Suspect]

REACTIONS (4)
  - DIZZINESS [None]
  - HYPOTENSION [None]
  - GASTROINTESTINAL DISORDER [None]
  - DRUG INEFFECTIVE [None]
